FAERS Safety Report 14669995 (Version 1)
Quarter: 2018Q1

REPORT INFORMATION
  Report Type: Spontaneous
  Country: US (occurrence: US)
  Receive Date: 20180322
  Receipt Date: 20180322
  Transmission Date: 20180509
  Serious: No
  Sender: FDA-Public Use
  Company Number: US-LUNDBECK-DKLU2045370

PATIENT
  Sex: Female

DRUGS (1)
  1. ONFI [Suspect]
     Active Substance: CLOBAZAM
     Indication: ELECTROCARDIOGRAM ABNORMAL
     Route: 048
     Dates: start: 201712

REACTIONS (2)
  - Sleep disorder [Unknown]
  - Fatigue [Unknown]
